FAERS Safety Report 17726315 (Version 20)
Quarter: 2022Q4

REPORT INFORMATION
  Report Type: Report from Study
  Country: AU (occurrence: AU)
  Receive Date: 20200430
  Receipt Date: 20221117
  Transmission Date: 20230113
  Serious: Yes (Hospitalization, Other)
  Sender: FDA-Public Use
  Company Number: AU-BIOGEN-2019BI00805716

PATIENT
  Age: 25 Year
  Sex: Female
  Weight: 65 kg

DRUGS (5)
  1. TYSABRI [Suspect]
     Active Substance: NATALIZUMAB
     Indication: Multiple sclerosis
     Dosage: INFUSED OVER 1 HOUR, 300MG/15ML
     Route: 050
     Dates: start: 20190611, end: 20221026
  2. TYSABRI [Suspect]
     Active Substance: NATALIZUMAB
     Dosage: INFUSED OVER 1 HOUR
     Route: 050
     Dates: start: 20190611
  3. TYSABRI [Suspect]
     Active Substance: NATALIZUMAB
     Dosage: INFUSED OVER 1 HOUR
     Route: 050
     Dates: end: 20190708
  4. TYSABRI [Suspect]
     Active Substance: NATALIZUMAB
     Dosage: INFUSED OVER 1 HOUR
     Route: 050
     Dates: start: 20190709
  5. TYSABRI [Suspect]
     Active Substance: NATALIZUMAB
     Dosage: INFUSED OVER 1 HOUR
     Route: 050
     Dates: start: 20200428

REACTIONS (62)
  - Pain [Recovered/Resolved]
  - Blindness transient [Recovered/Resolved]
  - Anaemia [Recovered/Resolved]
  - Vision blurred [Unknown]
  - Intestinal polyp [Recovered/Resolved]
  - Prescribed underdose [Not Recovered/Not Resolved]
  - Hypomenorrhoea [Not Recovered/Not Resolved]
  - Polymenorrhoea [Not Recovered/Not Resolved]
  - Viral upper respiratory tract infection [Not Recovered/Not Resolved]
  - Cognitive disorder [Not Recovered/Not Resolved]
  - Muscle twitching [Not Recovered/Not Resolved]
  - Neuralgia [Not Recovered/Not Resolved]
  - Malaise [Not Recovered/Not Resolved]
  - Lethargy [Not Recovered/Not Resolved]
  - Muscular weakness [Unknown]
  - Limb discomfort [Unknown]
  - Feeling abnormal [Not Recovered/Not Resolved]
  - Back pain [Recovered/Resolved]
  - Lower respiratory tract congestion [Unknown]
  - Sinus pain [Unknown]
  - Heavy menstrual bleeding [Recovered/Resolved]
  - Migraine [Recovered/Resolved]
  - Tinnitus [Not Recovered/Not Resolved]
  - Superficial vein prominence [Unknown]
  - Contusion [Not Recovered/Not Resolved]
  - Pain in extremity [Recovered/Resolved]
  - Vertigo [Recovered/Resolved]
  - Stress [Unknown]
  - Hypoaesthesia [Not Recovered/Not Resolved]
  - Amenorrhoea [Recovered/Resolved]
  - Intermenstrual bleeding [Unknown]
  - Muscle spasms [Not Recovered/Not Resolved]
  - Memory impairment [Unknown]
  - Musculoskeletal stiffness [Not Recovered/Not Resolved]
  - Urinary incontinence [Not Recovered/Not Resolved]
  - Hangover [Not Recovered/Not Resolved]
  - Grief reaction [Unknown]
  - Inflammatory marker increased [Unknown]
  - Lower respiratory tract infection [Not Recovered/Not Resolved]
  - Weight decreased [Unknown]
  - Sinusitis [Not Recovered/Not Resolved]
  - Tonsillar hypertrophy [Not Recovered/Not Resolved]
  - Hyperhidrosis [Not Recovered/Not Resolved]
  - Snoring [Not Recovered/Not Resolved]
  - COVID-19 [Not Recovered/Not Resolved]
  - Helicobacter infection [Recovered/Resolved]
  - Diarrhoea [Not Recovered/Not Resolved]
  - Oropharyngeal pain [Unknown]
  - Sensory disturbance [Not Recovered/Not Resolved]
  - Muscle tightness [Not Recovered/Not Resolved]
  - Fall [Recovered/Resolved]
  - Skin abrasion [Unknown]
  - Multiple sclerosis [Unknown]
  - Intervertebral disc protrusion [Not Recovered/Not Resolved]
  - Chest discomfort [Not Recovered/Not Resolved]
  - Urinary tract infection [Unknown]
  - Herpes zoster [Unknown]
  - Headache [Recovered/Resolved]
  - Fatigue [Not Recovered/Not Resolved]
  - Vomiting [Recovered/Resolved]
  - Nausea [Recovered/Resolved]
  - Nasopharyngitis [Not Recovered/Not Resolved]

NARRATIVE: CASE EVENT DATE: 20190701
